FAERS Safety Report 23929720 (Version 2)
Quarter: 2025Q3

REPORT INFORMATION
  Report Type: Spontaneous
  Country: US (occurrence: US)
  Receive Date: 20240601
  Receipt Date: 20250703
  Transmission Date: 20251020
  Serious: No
  Sender: RADIUS PHARM
  Company Number: US-RADIUS HEALTH INC.-2024US002187

PATIENT
  Age: 63 Year
  Sex: Female

DRUGS (1)
  1. TYMLOS [Suspect]
     Active Substance: ABALOPARATIDE
     Indication: Senile osteoporosis
     Route: 058
     Dates: start: 20240326

REACTIONS (8)
  - Injection site discomfort [Unknown]
  - Headache [Recovering/Resolving]
  - Sciatica [Unknown]
  - Injection site pain [Unknown]
  - Injection site scar [Unknown]
  - Pain [Recovering/Resolving]
  - Influenza [Unknown]
  - Intentional dose omission [Unknown]

NARRATIVE: CASE EVENT DATE: 20240326
